FAERS Safety Report 6692904-4 (Version None)
Quarter: 2010Q2

REPORT INFORMATION
  Report Type: 
  Country: None (occurrence: None)
  Receive Date: 20100419
  Receipt Date: 20100407
  Transmission Date: 20101027
  Serious: No
  Sender: FDA-Public Use
  Company Number: 009923

PATIENT
  Sex: Male

DRUGS (4)
  1. KEPPRA [Suspect]
     Dosage: 250 MG BID, ORAL, 500 MG BID, ORAL
     Route: 048
     Dates: start: 20100101
  2. KEPPRA [Suspect]
     Dosage: 250 MG BID, ORAL, 500 MG BID, ORAL
     Route: 048
     Dates: start: 20100101
  3. CARBAMAZEPINE [Concomitant]
  4. INSULIN [Concomitant]

REACTIONS (3)
  - ANAEMIA [None]
  - BLOOD GLUCOSE DECREASED [None]
  - CONVULSION [None]
